FAERS Safety Report 11775046 (Version 2)
Quarter: 2015Q4

REPORT INFORMATION
  Report Type: Spontaneous
  Country: US (occurrence: US)
  Receive Date: 20151124
  Receipt Date: 20151202
  Transmission Date: 20160304
  Serious: Yes (Death)
  Sender: FDA-Public Use
  Company Number: US-ACTELION-A-US2015-127512

PATIENT
  Age: 76 Year
  Sex: Male

DRUGS (10)
  1. FISH OIL [Concomitant]
     Active Substance: FISH OIL
  2. METOPROLOL [Concomitant]
     Active Substance: METOPROLOL
  3. LOSARTAN. [Concomitant]
     Active Substance: LOSARTAN
  4. VITAMIN D [Concomitant]
     Active Substance: CHOLECALCIFEROL
  5. NIASPAN [Concomitant]
     Active Substance: NIACIN
  6. AMLODIPINE [Concomitant]
     Active Substance: AMLODIPINE BESYLATE
  7. OPSUMIT [Suspect]
     Active Substance: MACITENTAN
     Indication: PULMONARY ARTERIAL HYPERTENSION
     Dosage: 10 MG, QD
     Route: 048
     Dates: start: 20151016, end: 20151112
  8. ALBUTEROL. [Concomitant]
     Active Substance: ALBUTEROL
  9. XARELTO [Concomitant]
     Active Substance: RIVAROXABAN
  10. RIOCIGUAT [Concomitant]
     Active Substance: RIOCIGUAT

REACTIONS (1)
  - Pulmonary hypertension [Fatal]

NARRATIVE: CASE EVENT DATE: 20151112
